FAERS Safety Report 21040255 (Version 1)
Quarter: 2022Q3

REPORT INFORMATION
  Report Type: Spontaneous
  Country: GB (occurrence: GB)
  Receive Date: 20220704
  Receipt Date: 20220704
  Transmission Date: 20221027
  Serious: Yes (Other)
  Sender: FDA-Public Use
  Company Number: None

PATIENT

DRUGS (3)
  1. AZITHROMYCIN [Suspect]
     Active Substance: AZITHROMYCIN
     Indication: Dental care
     Dosage: 250 MG, 2X/DAY
     Dates: start: 20220425
  2. PROPOFOL [Concomitant]
     Active Substance: PROPOFOL
     Indication: Adverse drug reaction
     Dosage: UNK
     Dates: start: 20220425
  3. PROPOFOL [Concomitant]
     Active Substance: PROPOFOL
     Indication: Anaesthesia

REACTIONS (2)
  - Alopecia areata [Not Recovered/Not Resolved]
  - Off label use [Unknown]

NARRATIVE: CASE EVENT DATE: 20220425
